FAERS Safety Report 14492062 (Version 2)
Quarter: 2018Q1

REPORT INFORMATION
  Report Type: Spontaneous
  Country: US (occurrence: US)
  Receive Date: 20180206
  Receipt Date: 20180314
  Transmission Date: 20180509
  Serious: No
  Sender: FDA-Public Use
  Company Number: US-009507513-1801USA014329

PATIENT
  Age: 16 Year
  Sex: Female
  Weight: 92.52 kg

DRUGS (1)
  1. NEXPLANON [Suspect]
     Active Substance: ETONOGESTREL
     Indication: CONTRACEPTION
     Dosage: 1 ROD EVERY 3 YEARS,THE FIRST ROUD IN RIGHT ARM
     Route: 059
     Dates: start: 20170824, end: 20180115

REACTIONS (6)
  - Implant site erythema [Unknown]
  - Implant site pain [Recovered/Resolved]
  - Device breakage [Recovered/Resolved]
  - Device kink [Recovered/Resolved]
  - Device deployment issue [Recovered/Resolved]
  - Administration site discomfort [Unknown]

NARRATIVE: CASE EVENT DATE: 20170824
